FAERS Safety Report 7571414-6 (Version None)
Quarter: 2011Q2

REPORT INFORMATION
  Report Type: 
  Country: None (occurrence: None)
  Receive Date: 20110624
  Receipt Date: 20110615
  Transmission Date: 20111010
  Serious: Yes (Hospitalization)
  Sender: FDA-Public Use
  Company Number: PHHY2011BR47492

PATIENT
  Sex: Male
  Weight: 80 kg

DRUGS (2)
  1. KETOCONAZOLE [Suspect]
  2. DOXYCYCLINE [Suspect]
     Indication: ACARODERMATITIS
     Dosage: 100 MG, TID
     Route: 048

REACTIONS (4)
  - ASTHENIA [None]
  - MEMORY IMPAIRMENT [None]
  - HYPERSENSITIVITY [None]
  - HEADACHE [None]
